FAERS Safety Report 9822712 (Version 2)
Quarter: 2014Q1

REPORT INFORMATION
  Report Type: Spontaneous
  Country: AU (occurrence: AU)
  Receive Date: 20140116
  Receipt Date: 20140222
  Transmission Date: 20141002
  Serious: Yes (Other)
  Sender: FDA-Public Use
  Company Number: AU-ROCHE-1333989

PATIENT
  Age: 23 Year
  Sex: Female

DRUGS (1)
  1. VEMURAFENIB [Suspect]
     Indication: METASTATIC MALIGNANT MELANOMA
     Route: 065
     Dates: start: 201205

REACTIONS (7)
  - Disease progression [Unknown]
  - Brain neoplasm malignant [Unknown]
  - Headache [Unknown]
  - Abnormal behaviour [Unknown]
  - Amnesia [Unknown]
  - Cognitive disorder [Unknown]
  - Radiation necrosis [Unknown]
